FAERS Safety Report 5670276-1 (Version None)
Quarter: 2008Q1

REPORT INFORMATION
  Report Type: 
  Country: None (occurrence: None)
  Receive Date: 20080318
  Receipt Date: 20080313
  Transmission Date: 20080703
  Serious: Yes (Other)
  Sender: FDA-Public Use
  Company Number: FR-BRISTOL-MYERS SQUIBB COMPANY-14055610

PATIENT
  Age: 55 Year
  Sex: Female

DRUGS (4)
  1. BARACLUDE [Suspect]
     Indication: HEPATITIS B
     Dates: start: 20071212
  2. AVLOCARDYL [Concomitant]
  3. VITAMIN B1 [Concomitant]
  4. VITAMIN B6 [Concomitant]

REACTIONS (7)
  - CATARACT [None]
  - DIPLOPIA [None]
  - DYSPEPSIA [None]
  - FATIGUE [None]
  - GASTROOESOPHAGEAL REFLUX DISEASE [None]
  - NAUSEA [None]
  - PAIN IN EXTREMITY [None]
